FAERS Safety Report 21661466 (Version 2)
Quarter: 2022Q4

REPORT INFORMATION
  Report Type: Report from Study
  Country: US (occurrence: US)
  Receive Date: 20221130
  Receipt Date: 20221202
  Transmission Date: 20230113
  Serious: No
  Sender: FDA-Public Use
  Company Number: US-ABBVIE-4209966

PATIENT
  Age: 62 Year
  Sex: Male

DRUGS (1)
  1. HUMIRA [Suspect]
     Active Substance: ADALIMUMAB
     Indication: Psoriatic arthropathy
     Route: 058

REACTIONS (4)
  - SARS-CoV-2 test positive [Unknown]
  - Malaise [Unknown]
  - Oropharyngeal pain [Unknown]
  - Headache [Unknown]

NARRATIVE: CASE EVENT DATE: 20221119
